FAERS Safety Report 9761863 (Version 4)
Quarter: 2014Q2

REPORT INFORMATION
  Report Type: Spontaneous
  Country: US (occurrence: US)
  Receive Date: 20131216
  Receipt Date: 20140624
  Transmission Date: 20141212
  Serious: No
  Sender: FDA-Public Use
  Company Number: US-BIOGENIDEC-2013BI108033

PATIENT
  Age: 71 Year
  Sex: Female
  Weight: 54 kg

DRUGS (12)
  1. TECFIDERA [Suspect]
     Indication: MULTIPLE SCLEROSIS
     Dates: start: 201306
  2. TECFIDERA [Suspect]
     Indication: MULTIPLE SCLEROSIS
     Route: 048
     Dates: start: 20130707
  3. AMPYRA [Concomitant]
     Indication: GAIT DISTURBANCE
     Route: 048
     Dates: start: 2011, end: 201309
  4. AMPYRA [Concomitant]
     Indication: GAIT DISTURBANCE
     Dates: start: 201311
  5. ASPIRIN [Concomitant]
  6. CALCIUM [Concomitant]
  7. VITAMIN D [Concomitant]
  8. LIPITOR [Concomitant]
  9. FOSAMAX [Concomitant]
  10. BACLOFEN [Concomitant]
  11. DETROL LA [Concomitant]
  12. PREMARIN [Concomitant]

REACTIONS (11)
  - Skin warm [Not Recovered/Not Resolved]
  - Gait disturbance [Recovered/Resolved]
  - Pain of skin [Recovered/Resolved]
  - Back pain [Unknown]
  - Nerve compression [Unknown]
  - Pelvic pain [Recovered/Resolved]
  - Intervertebral disc protrusion [Recovered/Resolved]
  - Hypoaesthesia [Unknown]
  - Paraesthesia [Recovered/Resolved]
  - Feeling hot [Not Recovered/Not Resolved]
  - Hot flush [Not Recovered/Not Resolved]
